FAERS Safety Report 10464548 (Version 2)
Quarter: 2014Q4

REPORT INFORMATION
  Report Type: Report from Study
  Country: US (occurrence: US)
  Receive Date: 20140919
  Receipt Date: 20141014
  Transmission Date: 20150528
  Serious: Yes (Other)
  Sender: FDA-Public Use
  Company Number: US-SA-2014SA128594

PATIENT
  Age: 70 Year
  Sex: Female

DRUGS (1)
  1. LANTUS [Suspect]
     Active Substance: INSULIN GLARGINE
     Route: 065
     Dates: start: 1999

REACTIONS (4)
  - Tibia fracture [Unknown]
  - Neuropathy peripheral [Unknown]
  - Irritable bowel syndrome [Unknown]
  - Obesity [Unknown]

NARRATIVE: CASE EVENT DATE: 201001
